FAERS Safety Report 6258878-5 (Version None)
Quarter: 2009Q3

REPORT INFORMATION
  Report Type: 
  Country: None (occurrence: None)
  Receive Date: 20090707
  Receipt Date: 20090629
  Transmission Date: 20100115
  Serious: Yes (Congenital Anomaly)
  Sender: FDA-Public Use
  Company Number: SI-BRISTOL-MYERS SQUIBB COMPANY-14688865

PATIENT
  Sex: Male

DRUGS (3)
  1. IRBESARTAN [Suspect]
     Dosage: 1 DF = 150-300MG DAILY.
     Route: 064
  2. METHYLDOPA [Suspect]
     Route: 064
  3. LYSINE ACETYLSALICYLATE [Suspect]
     Route: 064

REACTIONS (1)
  - POLYDACTYLY [None]
